FAERS Safety Report 15950612 (Version 2)
Quarter: 2019Q2

REPORT INFORMATION
  Report Type: Report from Study
  Country: US (occurrence: US)
  Receive Date: 20190212
  Receipt Date: 20190411
  Transmission Date: 20190711
  Serious: Yes (Death, Hospitalization, Other)
  Sender: FDA-Public Use
  Company Number: US-JAZZ-2019-US-001860

PATIENT
  Age: 70 Year
  Sex: Female

DRUGS (14)
  1. CLOZAPINE. [Suspect]
     Active Substance: CLOZAPINE
     Indication: PRODUCT USED FOR UNKNOWN INDICATION
     Dosage: MG,QD
     Route: 048
  2. VITAMIN B12 [Concomitant]
     Active Substance: CYANOCOBALAMIN
     Indication: PRODUCT USED FOR UNKNOWN INDICATION
  3. MILK OF MAGNESIA [Concomitant]
     Active Substance: MAGNESIUM HYDROXIDE
     Indication: PRODUCT USED FOR UNKNOWN INDICATION
  4. DOCUSATE SODIUM. [Concomitant]
     Active Substance: DOCUSATE SODIUM
     Indication: PRODUCT USED FOR UNKNOWN INDICATION
  5. SALBUTAMOL [Concomitant]
     Active Substance: ALBUTEROL
     Indication: PRODUCT USED FOR UNKNOWN INDICATION
  6. TRAZODONE [Concomitant]
     Active Substance: TRAZODONE HYDROCHLORIDE
     Indication: PRODUCT USED FOR UNKNOWN INDICATION
  7. LATUDA [Concomitant]
     Active Substance: LURASIDONE HYDROCHLORIDE
     Indication: PRODUCT USED FOR UNKNOWN INDICATION
     Dosage: 20 MG, DAILY
  8. ASPIRIN EC [Concomitant]
     Active Substance: ASPIRIN
     Indication: PRODUCT USED FOR UNKNOWN INDICATION
  9. LORAZEPAM. [Concomitant]
     Active Substance: LORAZEPAM
     Indication: PRODUCT USED FOR UNKNOWN INDICATION
  10. ACETAMINOPHEN. [Concomitant]
     Active Substance: ACETAMINOPHEN
     Indication: PRODUCT USED FOR UNKNOWN INDICATION
  11. CLOZAPINE. [Suspect]
     Active Substance: CLOZAPINE
     Dosage: 300 MG, TWICE DAILY
     Route: 048
  12. CITALOPRAM [Concomitant]
     Active Substance: CITALOPRAM HYDROBROMIDE
     Indication: PRODUCT USED FOR UNKNOWN INDICATION
     Dosage: 20 MG
  13. ATORVASTATIN [Concomitant]
     Active Substance: ATORVASTATIN
     Indication: PRODUCT USED FOR UNKNOWN INDICATION
  14. ATIVAN [Concomitant]
     Active Substance: LORAZEPAM
     Indication: PRODUCT USED FOR UNKNOWN INDICATION
     Dosage: 0.5 MG, THREE TMES DAILY

REACTIONS (26)
  - Coma [Fatal]
  - Disseminated intravascular coagulation [Fatal]
  - Chronic obstructive pulmonary disease [Fatal]
  - Oropharyngeal pain [Unknown]
  - Ischaemic hepatitis [Fatal]
  - Sepsis [Fatal]
  - Pyrexia [Unknown]
  - Respiratory arrest [Fatal]
  - Aspiration [Fatal]
  - Pneumonia [Fatal]
  - Nausea [Unknown]
  - Acute kidney injury [Fatal]
  - Salivary gland neoplasm [Unknown]
  - Dysphagia [Unknown]
  - Septic shock [Fatal]
  - Choking [Unknown]
  - Intestinal ischaemia [Unknown]
  - Sternal fracture [Unknown]
  - Vomiting [Unknown]
  - Respiratory failure [Fatal]
  - Cardiac arrest [Fatal]
  - Haematemesis [Unknown]
  - Pain [Unknown]
  - Leukocytosis [Unknown]
  - Ischaemia [Unknown]
  - Rib fracture [Unknown]

NARRATIVE: CASE EVENT DATE: 20190203
